FAERS Safety Report 11380947 (Version 1)
Quarter: 2015Q3

REPORT INFORMATION
  Report Type: Spontaneous
  Country: US (occurrence: None)
  Receive Date: 20150813
  Receipt Date: 20150813
  Transmission Date: 20151125
  Serious: Yes (Hospitalization)
  Sender: FDA-Public Use
  Company Number: None

PATIENT
  Age: 30 Year
  Sex: Female

DRUGS (2)
  1. HARVONI [Suspect]
     Active Substance: LEDIPASVIR\SOFOSBUVIR
     Indication: HEPATITIS C
     Dosage: 1 PILL
     Route: 048
  2. RIFAMPIN. [Concomitant]
     Active Substance: RIFAMPIN

REACTIONS (4)
  - Device related infection [None]
  - Device related sepsis [None]
  - Fungal infection [None]
  - Drug interaction [None]

NARRATIVE: CASE EVENT DATE: 20150729
